FAERS Safety Report 8000311-7 (Version None)
Quarter: 2011Q4

REPORT INFORMATION
  Report Type: 
  Country: None (occurrence: None)
  Receive Date: 20111220
  Receipt Date: 20111220
  Transmission Date: 20120403
  Serious: Yes (Hospitalization, Disabling, Other)
  Sender: FDA-Public Use
  Company Number: None

PATIENT
  Age: 61 Year
  Sex: Male
  Weight: 90.7194 kg

DRUGS (4)
  1. PROZAC [Suspect]
     Indication: ANXIETY
     Dosage: 10MG 2-3 X/DAY ORAL; 2MOS' OF THE NEW MANUF.
     Route: 048
     Dates: start: 19990101, end: 20110101
  2. PROZAC [Suspect]
     Indication: DEPRESSION
     Dosage: 10MG 2-3 X/DAY ORAL; 2MOS' OF THE NEW MANUF.
     Route: 048
     Dates: start: 19990101, end: 20110101
  3. PROZAC [Suspect]
     Indication: ANXIETY
     Dosage: 10MG 2-3 X/DAY ORAL; 2MOS' OF THE NEW MANUF.
     Route: 048
  4. PROZAC [Suspect]
     Indication: DEPRESSION
     Dosage: 10MG 2-3 X/DAY ORAL; 2MOS' OF THE NEW MANUF.
     Route: 048

REACTIONS (4)
  - HALLUCINATION [None]
  - MANIA [None]
  - MENTAL DISORDER [None]
  - BIPOLAR DISORDER [None]
